FAERS Safety Report 24717827 (Version 1)
Quarter: 2024Q4

REPORT INFORMATION
  Report Type: Spontaneous
  Country: US (occurrence: None)
  Receive Date: 20241206
  Receipt Date: 20241206
  Transmission Date: 20250115
  Serious: Yes (Other)
  Sender: Public
  Company Number: None

PATIENT
  Age: 58 Year
  Sex: Female
  Weight: 60.3 kg

DRUGS (13)
  1. ALKA-SELTZER [Suspect]
     Active Substance: ANHYDROUS CITRIC ACID\ASPIRIN\SODIUM BICARBONATE
     Indication: Nasal congestion
     Dosage: 2 TABLETS ORAL
     Route: 048
     Dates: start: 20241206, end: 20241206
  2. ALKA-SELTZER [Suspect]
     Active Substance: ANHYDROUS CITRIC ACID\ASPIRIN\SODIUM BICARBONATE
     Indication: Cough
  3. ALKA-SELTZER [Suspect]
     Active Substance: ANHYDROUS CITRIC ACID\ASPIRIN\SODIUM BICARBONATE
     Indication: Oropharyngeal pain
  4. AMOXICILLAN [Concomitant]
     Active Substance: AMOXICILLIN
  5. LEVOTHYROXINE [Concomitant]
     Active Substance: LEVOTHYROXINE
  6. ESTRADIOL [Concomitant]
     Active Substance: ESTRADIOL
  7. ADDERALL [Concomitant]
     Active Substance: AMPHETAMINE ASPARTATE\AMPHETAMINE SULFATE\DEXTROAMPHETAMINE SACCHARATE\DEXTROAMPHETAMINE SULFATE
  8. TRAZODONE [Concomitant]
     Active Substance: TRAZODONE HYDROCHLORIDE
  9. titatzine [Concomitant]
  10. METOPROLOL [Concomitant]
     Active Substance: METOPROLOL
  11. BENADRYL [Concomitant]
     Active Substance: DIPHENHYDRAMINE HYDROCHLORIDE
  12. TYLENOL [Concomitant]
     Active Substance: ACETAMINOPHEN
  13. NAPROXEN [Concomitant]
     Active Substance: NAPROXEN

REACTIONS (2)
  - Rectal haemorrhage [None]
  - Burning sensation [None]

NARRATIVE: CASE EVENT DATE: 20241206
